FAERS Safety Report 8451144-9 (Version None)
Quarter: 2012Q2

REPORT INFORMATION
  Report Type: 
  Country: None (occurrence: None)
  Receive Date: 20120620
  Receipt Date: 20120305
  Transmission Date: 20120825
  Serious: No
  Sender: FDA-Public Use
  Company Number: US-VERTEX PHARMACEUTICALS INC.-AE-2011-000725

PATIENT
  Sex: Female
  Weight: 89.892 kg

DRUGS (6)
  1. RIBAVIRIN [Concomitant]
     Indication: HEPATITIS C
     Dates: start: 20110627, end: 20110827
  2. RIBAVIRIN [Concomitant]
     Dates: start: 20110801
  3. INCIVEK [Suspect]
     Indication: HEPATITIS C
     Route: 048
     Dates: start: 20110627, end: 20110827
  4. PROZAC [Concomitant]
     Indication: DEPRESSION
     Dates: start: 20110601
  5. PRILOSEC [Concomitant]
  6. PEGASYS [Concomitant]
     Indication: HEPATITIS C
     Route: 058
     Dates: start: 20110627, end: 20110827

REACTIONS (12)
  - FATIGUE [None]
  - POOR QUALITY SLEEP [None]
  - SYNCOPE [None]
  - DIZZINESS [None]
  - FEELING ABNORMAL [None]
  - NAUSEA [None]
  - DIARRHOEA [None]
  - DYSPNOEA [None]
  - HAEMOGLOBIN DECREASED [None]
  - VOMITING [None]
  - HYPERSOMNIA [None]
  - PAIN [None]
